FAERS Safety Report 7115267-9 (Version None)
Quarter: 2010Q4

REPORT INFORMATION
  Report Type: 
  Country: None (occurrence: None)
  Receive Date: 20101117
  Receipt Date: 20101117
  Transmission Date: 20110411
  Serious: Yes (Hospitalization)
  Sender: FDA-Public Use
  Company Number: None

PATIENT
  Age: 84 Year
  Sex: Female
  Weight: 59.5 kg

DRUGS (1)
  1. FLUPHENAZINE [Suspect]
     Indication: BIPOLAR DISORDER
     Dosage: 1 MG DAILY PO
     Route: 048

REACTIONS (3)
  - FALL [None]
  - FEMUR FRACTURE [None]
  - LONG QT SYNDROME [None]
